FAERS Safety Report 17900243 (Version 6)
Quarter: 2022Q3

REPORT INFORMATION
  Report Type: Spontaneous
  Country: US (occurrence: US)
  Receive Date: 20200616
  Receipt Date: 20220729
  Transmission Date: 20221026
  Serious: No
  Sender: FDA-Public Use
  Company Number: US-PFIZER INC-2020232081

PATIENT
  Age: 60 Year
  Sex: Female

DRUGS (2)
  1. XELJANZ XR [Suspect]
     Active Substance: TOFACITINIB CITRATE
     Indication: Rheumatoid arthritis
     Dosage: 11 MG, 1X/DAY
     Route: 048
     Dates: start: 201909
  2. XELJANZ XR [Suspect]
     Active Substance: TOFACITINIB CITRATE
     Dosage: 11 MG, 1X/DAY
     Route: 048
     Dates: start: 202206

REACTIONS (8)
  - Musculoskeletal stiffness [Unknown]
  - Pain in extremity [Unknown]
  - Feeling abnormal [Unknown]
  - Pain in extremity [Unknown]
  - Arthralgia [Unknown]
  - Product dose omission in error [Unknown]
  - Intentional dose omission [Unknown]
  - Illness [Unknown]

NARRATIVE: CASE EVENT DATE: 20220601
